FAERS Safety Report 11342448 (Version 1)
Quarter: 2015Q3

REPORT INFORMATION
  Report Type: Spontaneous
  Country: US (occurrence: US)
  Receive Date: 20150805
  Receipt Date: 20150805
  Transmission Date: 20151125
  Serious: Yes (Hospitalization)
  Sender: FDA-Public Use
  Company Number: US-SHIRE-US201509117

PATIENT
  Age: 13 Year
  Sex: Female

DRUGS (1)
  1. FIRAZYR [Suspect]
     Active Substance: ICATIBANT ACETATE
     Indication: HEREDITARY ANGIOEDEMA
     Dosage: 30 MG, AS REQ^D
     Route: 058
     Dates: start: 20140716

REACTIONS (4)
  - Product use issue [Unknown]
  - Hereditary angioedema [Unknown]
  - Pharyngeal oedema [Unknown]
  - Malaise [Unknown]

NARRATIVE: CASE EVENT DATE: 20140716
